APPROVED DRUG PRODUCT: MELAMISA
Active Ingredient: DROSPIRENONE; ETHINYL ESTRADIOL
Strength: 3MG;0.02MG
Dosage Form/Route: TABLET;ORAL
Application: A202016 | Product #001 | TE Code: AB
Applicant: NOVAST LABORATORIES LTD
Approved: Jan 26, 2016 | RLD: No | RS: No | Type: RX